FAERS Safety Report 9867578 (Version 1)
Quarter: 2014Q1

REPORT INFORMATION
  Report Type: Spontaneous
  Country: BE (occurrence: BE)
  Receive Date: 20140204
  Receipt Date: 20140204
  Transmission Date: 20141002
  Serious: Yes (Hospitalization)
  Sender: FDA-Public Use
  Company Number: BE-ASTRAZENECA-2014SE06488

PATIENT
  Age: 79 Year
  Sex: Male
  Weight: 84 kg

DRUGS (7)
  1. BRILIQUE [Suspect]
     Indication: ACUTE CORONARY SYNDROME
     Route: 048
     Dates: start: 20130430, end: 20130718
  2. BRILIQUE [Suspect]
     Indication: ACUTE CORONARY SYNDROME
     Route: 048
     Dates: start: 20130812
  3. ASAFLOW [Suspect]
     Route: 048
  4. ZESTORETIC [Concomitant]
  5. ALDACTONE [Concomitant]
  6. SIMVASTATINE [Concomitant]
  7. COMBODART [Concomitant]

REACTIONS (2)
  - Diverticulitis intestinal haemorrhagic [Recovered/Resolved]
  - Haematospermia [Not Recovered/Not Resolved]
